FAERS Safety Report 4784458-4 (Version None)
Quarter: 2005Q3

REPORT INFORMATION
  Report Type: 
  Country: None (occurrence: None)
  Receive Date: 20050929
  Receipt Date: 20050929
  Transmission Date: 20060218
  Serious: Yes (Death)
  Sender: FDA-Public Use
  Company Number: None

PATIENT
  Sex: Female
  Weight: 60.3284 kg

DRUGS (6)
  1. LIPITOR [Suspect]
     Indication: HYPERCHOLESTEROLAEMIA
  2. ADALAT CC [Concomitant]
  3. FOSAMAX [Concomitant]
  4. MAXZIDE [Concomitant]
  5. LOTENSIN [Concomitant]
  6. PAXIL [Concomitant]

REACTIONS (3)
  - FATIGUE [None]
  - METABOLIC ACIDOSIS [None]
  - TRANSAMINASES INCREASED [None]
